FAERS Safety Report 6107868-1 (Version None)
Quarter: 2009Q1

REPORT INFORMATION
  Report Type: 
  Country: None (occurrence: None)
  Receive Date: 20090309
  Receipt Date: 20090226
  Transmission Date: 20090719
  Serious: Yes (Other)
  Sender: FDA-Public Use
  Company Number: PHHY2008BR32771

PATIENT
  Sex: Female

DRUGS (4)
  1. ELIDEL [Suspect]
     Indication: VITILIGO
     Dosage: 15 G, ONCE DAILY
     Route: 061
  2. ELIDEL [Suspect]
     Dosage: UNK
     Dates: start: 20081001
  3. PURAN T4 [Concomitant]
     Indication: HYPOTHYROIDISM
     Dosage: 1 TABLET DAILY
     Route: 048
  4. HYDROXYCHLOROQUINE SULFATE [Concomitant]
     Indication: ANTIPHOSPHOLIPID ANTIBODIES

REACTIONS (3)
  - CAESAREAN SECTION [None]
  - DRUG EXPOSURE DURING PREGNANCY [None]
  - NORMAL NEWBORN [None]
